FAERS Safety Report 9254819 (Version 2)
Quarter: 2013Q2

REPORT INFORMATION
  Report Type: Report from Study
  Country: US (occurrence: US)
  Receive Date: 20130425
  Receipt Date: 20130508
  Transmission Date: 20140414
  Serious: No
  Sender: FDA-Public Use
  Company Number: US-VERTEX PHARMACEUTICALS INC.-2013-005342

PATIENT
  Age: 60 Year
  Sex: Male

DRUGS (3)
  1. VX-950 (TELAPREVIR) [Suspect]
     Indication: HEPATITIS C
     Dosage: UNK
     Route: 048
     Dates: start: 20130304
  2. RIBAVIRIN [Suspect]
     Indication: HEPATITIS C
     Dosage: UNK
     Dates: start: 20130304
  3. PEGASYS PFS 180MCG ABBOTT [Suspect]
     Indication: HEPATITIS C
     Dosage: UNK
     Dates: start: 20130304

REACTIONS (3)
  - Skin ulcer [Unknown]
  - Rash papular [Recovered/Resolved]
  - Pruritus [Unknown]
